FAERS Safety Report 4780365-1 (Version None)
Quarter: 2005Q3

REPORT INFORMATION
  Report Type: 
  Country: None (occurrence: None)
  Receive Date: 20050926
  Receipt Date: 20050926
  Transmission Date: 20060218
  Serious: Yes (Life-Threatening)
  Sender: FDA-Public Use
  Company Number: None

PATIENT
  Age: 44 Year
  Sex: Female
  Weight: 103 kg

DRUGS (3)
  1. DEXFERRUM [Suspect]
     Indication: ANAEMIA
     Dosage: 25MG IV PUSH
     Route: 042
     Dates: start: 20050712
  2. FERGON [Concomitant]
  3. NU-IRON [Concomitant]

REACTIONS (7)
  - BACK PAIN [None]
  - BLOOD PRESSURE DECREASED [None]
  - CHEST DISCOMFORT [None]
  - CHEST PAIN [None]
  - FLUSHING [None]
  - HEART RATE INCREASED [None]
  - NAUSEA [None]
